FAERS Safety Report 15451991 (Version 1)
Quarter: 2018Q4

REPORT INFORMATION
  Report Type: Spontaneous
  Country: CA (occurrence: CA)
  Receive Date: 20181001
  Receipt Date: 20181001
  Transmission Date: 20190204
  Serious: Yes (Hospitalization, Other)
  Sender: FDA-Public Use
  Company Number: CA-PFIZER INC-2018392045

PATIENT
  Age: 4 Year
  Sex: Female

DRUGS (1)
  1. CHILDRENS ADVIL [Suspect]
     Active Substance: IBUPROFEN
     Indication: PYREXIA
     Dosage: 5 ML, 4X/DAY
     Route: 048

REACTIONS (4)
  - Pneumonia [Recovering/Resolving]
  - Tremor [Recovering/Resolving]
  - Product use issue [Unknown]
  - Pyrexia [Recovering/Resolving]
